FAERS Safety Report 7252525-1 (Version None)
Quarter: 2011Q1

REPORT INFORMATION
  Report Type: 
  Country: None (occurrence: None)
  Receive Date: 20110129
  Receipt Date: 20100113
  Transmission Date: 20110831
  Serious: No
  Sender: FDA-Public Use
  Company Number: US-ABBOTT-10P-163-0619937-00

PATIENT
  Sex: Female
  Weight: 48.124 kg

DRUGS (6)
  1. HUMIRA [Suspect]
     Dates: start: 20091201, end: 20100101
  2. HUMIRA [Suspect]
     Indication: CROHN'S DISEASE
     Dates: start: 20090101
  3. PENTASA [Concomitant]
     Indication: CROHN'S DISEASE
     Dosage: UNKNOWN
  4. ZINC [Suspect]
     Indication: ALOPECIA
     Dosage: UNKNOWN
     Dates: start: 20100115, end: 20100115
  5. VITAMIN D [Concomitant]
     Indication: VITAMIN SUPPLEMENTATION
     Dosage: UNKNOWN
  6. HUMIRA [Suspect]
     Dates: start: 20100101

REACTIONS (3)
  - ALOPECIA [None]
  - NODULE [None]
  - CROHN'S DISEASE [None]
